FAERS Safety Report 12369462 (Version 1)
Quarter: 2016Q2

REPORT INFORMATION
  Report Type: Spontaneous
  Country: US (occurrence: None)
  Receive Date: 20160513
  Receipt Date: 20160513
  Transmission Date: 20160815
  Serious: No
  Sender: FDA-Public Use
  Company Number: None

PATIENT
  Age: 62 Year
  Sex: Female

DRUGS (1)
  1. CEFTRIAXONE 10GM PWVL FRESENIUS KABI USA [Suspect]
     Active Substance: CEFTRIAXONE
     Indication: INTERVERTEBRAL DISC DISORDER
     Dosage: 2000 GRAMS Q24HOURS IV
     Route: 042
     Dates: start: 20160504, end: 20160505

REACTIONS (1)
  - Rash [None]

NARRATIVE: CASE EVENT DATE: 20160506
